FAERS Safety Report 4773693-7 (Version None)
Quarter: 2005Q3

REPORT INFORMATION
  Report Type: 
  Country: None (occurrence: None)
  Receive Date: 20050919
  Receipt Date: 20050905
  Transmission Date: 20060218
  Serious: Yes (Disabling)
  Sender: FDA-Public Use
  Company Number: ENTC2005-0230

PATIENT
  Age: 46 Year
  Sex: Male

DRUGS (2)
  1. STALEVO 100 [Suspect]
     Indication: PARKINSON'S DISEASE
     Dosage: 4X100 ORAL
     Route: 048
     Dates: start: 20050612
  2. ROPINIROLE [Concomitant]

REACTIONS (5)
  - AMNESIA [None]
  - HEADACHE [None]
  - PAIN IN EXTREMITY [None]
  - SHOULDER PAIN [None]
  - TREATMENT NONCOMPLIANCE [None]
